FAERS Safety Report 11358595 (Version 1)
Quarter: 2015Q3

REPORT INFORMATION
  Report Type: Spontaneous
  Country: US (occurrence: US)
  Receive Date: 20150803
  Receipt Date: 20150803
  Transmission Date: 20151125
  Serious: No
  Sender: FDA-Public Use
  Company Number: US-ELI_LILLY_AND_COMPANY-US200907005935

PATIENT
  Sex: Male

DRUGS (4)
  1. ZYPREXA [Suspect]
     Active Substance: OLANZAPINE
     Dosage: 10 MG, DAILY (1/D)
  2. KLONOPIN [Concomitant]
     Active Substance: CLONAZEPAM
     Indication: ANXIETY
  3. ZYPREXA [Suspect]
     Active Substance: OLANZAPINE
     Dosage: 15 MG, DAILY (1/D)
     Dates: start: 20090723
  4. ZYPREXA [Suspect]
     Active Substance: OLANZAPINE
     Indication: ANXIETY
     Dosage: 5 MG, DAILY (1/D)

REACTIONS (7)
  - Drug ineffective [Unknown]
  - Lip dry [Unknown]
  - Feeling abnormal [Unknown]
  - Bradyphrenia [Unknown]
  - Polydipsia [Unknown]
  - Dysphagia [Unknown]
  - Pollakiuria [Unknown]

NARRATIVE: CASE EVENT DATE: 200907
